FAERS Safety Report 4479239-5 (Version None)
Quarter: 2004Q4

REPORT INFORMATION
  Report Type: 
  Country: None (occurrence: None)
  Receive Date: 20041019
  Receipt Date: 20041019
  Transmission Date: 20050328
  Serious: Yes (Life-Threatening)
  Sender: FDA-Public Use
  Company Number: None

PATIENT
  Age: 81 Year
  Sex: Female
  Weight: 66 kg

DRUGS (1)
  1. DIGOXIN [Suspect]
     Dosage: 0.125MG  DAILY  INTRAVENOUS
     Route: 042
     Dates: start: 20040617, end: 20040624

REACTIONS (2)
  - BLOOD PRESSURE DECREASED [None]
  - THERAPEUTIC AGENT TOXICITY [None]
